FAERS Safety Report 21563477 (Version 2)
Quarter: 2023Q1

REPORT INFORMATION
  Report Type: Spontaneous
  Country: US (occurrence: US)
  Receive Date: 20221108
  Receipt Date: 20230328
  Transmission Date: 20230418
  Serious: No
  Sender: FDA-Public Use
  Company Number: US-GSKCCFUS-Case-01547645_AE-87585

PATIENT
  Age: 64 Year
  Sex: Female

DRUGS (1)
  1. NUCALA [Suspect]
     Active Substance: MEPOLIZUMAB
     Indication: Asthma
     Dosage: UNK

REACTIONS (4)
  - COVID-19 [Recovered/Resolved]
  - Sinusitis [Unknown]
  - Arthralgia [Unknown]
  - Exostosis [Unknown]

NARRATIVE: CASE EVENT DATE: 20221007
